FAERS Safety Report 13391022 (Version 1)
Quarter: 2017Q1

REPORT INFORMATION
  Report Type: Spontaneous
  Country: None (occurrence: US)
  Receive Date: 20170331
  Receipt Date: 20170331
  Transmission Date: 20170429
  Serious: Yes (Hospitalization)
  Sender: FDA-Public Use
  Company Number: None

PATIENT
  Age: 41 Year
  Sex: Female
  Weight: 81 kg

DRUGS (3)
  1. CISPLATIN. [Suspect]
     Active Substance: CISPLATIN
     Dates: end: 20160822
  2. CARBOPLATIN. [Suspect]
     Active Substance: CARBOPLATIN
     Dates: end: 20161103
  3. TAXOL [Suspect]
     Active Substance: PACLITAXEL
     Dates: end: 20161103

REACTIONS (7)
  - Neutrophil count decreased [None]
  - Rhinorrhoea [None]
  - Nausea [None]
  - Staphylococcus test positive [None]
  - Pyrexia [None]
  - White blood cell count decreased [None]
  - Oropharyngeal pain [None]

NARRATIVE: CASE EVENT DATE: 20161115
